FAERS Safety Report 7377547-1 (Version None)
Quarter: 2011Q1

REPORT INFORMATION
  Report Type: 
  Country: None (occurrence: None)
  Receive Date: 20110328
  Receipt Date: 20110318
  Transmission Date: 20110831
  Serious: Yes (Life-Threatening, Other)
  Sender: FDA-Public Use
  Company Number: US-CELGENEUS-163-21880-11032459

PATIENT
  Sex: Male
  Weight: 78 kg

DRUGS (3)
  1. ZOCOR [Concomitant]
     Route: 065
     Dates: start: 20110101
  2. LOPRESSOR [Concomitant]
     Indication: HEART RATE ABNORMAL
     Route: 065
     Dates: start: 20110101
  3. REVLIMID [Suspect]
     Dosage: 15 MILLIGRAM
     Route: 048
     Dates: start: 20100811

REACTIONS (1)
  - CORONARY ARTERY DISEASE [None]
